FAERS Safety Report 7159711-X (Version None)
Quarter: 2010Q4

REPORT INFORMATION
  Report Type: 
  Country: None (occurrence: None)
  Receive Date: 20101214
  Receipt Date: 20101019
  Transmission Date: 20110411
  Serious: No
  Sender: FDA-Public Use
  Company Number: US-ASTRAZENECA-2010SE49393

PATIENT
  Age: 56 Year
  Sex: Female
  Weight: 80.7 kg

DRUGS (3)
  1. CRESTOR [Suspect]
     Route: 048
     Dates: start: 20100501
  2. ADVAIR DISKUS 100/50 [Concomitant]
  3. CORTISONE SHOTS [Concomitant]

REACTIONS (2)
  - HEADACHE [None]
  - WEIGHT INCREASED [None]
